FAERS Safety Report 9844417 (Version 1)
Quarter: 2014Q1

REPORT INFORMATION
  Report Type: Spontaneous
  Country: GB (occurrence: GB)
  Receive Date: 20140127
  Receipt Date: 20140127
  Transmission Date: 20141002
  Serious: Yes (Life-Threatening, Hospitalization, Disabling, Other)
  Sender: FDA-Public Use
  Company Number: PHHY2014GB005501

PATIENT
  Age: 24 Year
  Sex: Male
  Weight: 107.95 kg

DRUGS (1)
  1. QUETIAPINE [Suspect]
     Route: 048

REACTIONS (9)
  - Sleep apnoea syndrome [Not Recovered/Not Resolved]
  - Pallor [Unknown]
  - Glassy eyes [Unknown]
  - Dyspnoea [Unknown]
  - Tardive dyskinesia [Not Recovered/Not Resolved]
  - Diabetes mellitus [Not Recovered/Not Resolved]
  - Weight increased [Not Recovered/Not Resolved]
  - Metabolic syndrome [Not Recovered/Not Resolved]
  - Medication error [Unknown]
